FAERS Safety Report 20368784 (Version 3)
Quarter: 2022Q2

REPORT INFORMATION
  Report Type: Report from Study
  Country: US (occurrence: US)
  Receive Date: 20220124
  Receipt Date: 20220606
  Transmission Date: 20220720
  Serious: No
  Sender: FDA-Public Use
  Company Number: US-NOVARTISTESTPH-NVSC2022US014157

PATIENT
  Sex: Female
  Weight: 52.154 kg

DRUGS (2)
  1. TREPROSTINIL [Suspect]
     Active Substance: TREPROSTINIL
     Indication: Pulmonary arterial hypertension
     Dosage: UNK(10 NG/KG/MIN)CONTINUOUS
     Route: 042
     Dates: start: 20220114
  2. TREPROSTINIL [Suspect]
     Active Substance: TREPROSTINIL
     Dosage: UNK(10 NG/KG/MIN)CONTINUOUS
     Route: 065

REACTIONS (4)
  - Night sweats [Unknown]
  - Fatigue [Unknown]
  - Diarrhoea [Unknown]
  - Infection [Unknown]
